FAERS Safety Report 19055338 (Version 1)
Quarter: 2021Q1

REPORT INFORMATION
  Report Type: Report from Study
  Country: None (occurrence: AT)
  Receive Date: 20210325
  Receipt Date: 20210325
  Transmission Date: 20210420
  Serious: Yes (Death, Other)
  Sender: FDA-Public Use
  Company Number: AT-ABBVIE-21K-009-3830911-00

PATIENT
  Sex: Male

DRUGS (2)
  1. DUODOPA [Suspect]
     Active Substance: CARBIDOPA\LEVODOPA
  2. DUODOPA [Suspect]
     Active Substance: CARBIDOPA\LEVODOPA
     Indication: PARKINSON^S DISEASE
     Dosage: 24HRS THERAPY: MD. 9.6ML, CR DAYTIME: 3.3ML/H, ED: 1.9ML
     Route: 050
     Dates: start: 20140225

REACTIONS (2)
  - Pneumonia aspiration [Fatal]
  - General physical health deterioration [Not Recovered/Not Resolved]
